FAERS Safety Report 22119715 (Version 1)
Quarter: 2023Q1

REPORT INFORMATION
  Report Type: Spontaneous
  Country: US (occurrence: None)
  Receive Date: 20230321
  Receipt Date: 20230321
  Transmission Date: 20230418
  Serious: No
  Sender: FDA-Public Use
  Company Number: US-ROCHE-3064320

PATIENT
  Sex: Female

DRUGS (1)
  1. ERIVEDGE [Suspect]
     Active Substance: VISMODEGIB
     Indication: Basal cell carcinoma
     Route: 048
     Dates: start: 20220303

REACTIONS (5)
  - Fatigue [Unknown]
  - Arthritis [Unknown]
  - Muscle spasms [Unknown]
  - Ageusia [Unknown]
  - Nausea [Unknown]
